FAERS Safety Report 7781363-6 (Version None)
Quarter: 2011Q3

REPORT INFORMATION
  Report Type: 
  Country: None (occurrence: None)
  Receive Date: 20110927
  Receipt Date: 20110914
  Transmission Date: 20111222
  Serious: Yes (Hospitalization)
  Sender: FDA-Public Use
  Company Number: FR-JNJFOC-20110909392

PATIENT
  Sex: Male

DRUGS (14)
  1. TRAMADOL HCL [Suspect]
     Indication: PAIN
     Route: 048
     Dates: start: 20110818, end: 20110818
  2. PRIMPERAN TAB [Suspect]
     Indication: NAUSEA
     Route: 048
     Dates: start: 20110813, end: 20110814
  3. NEORAL [Concomitant]
     Route: 065
     Dates: start: 20110201
  4. ACETAMINOPHEN [Suspect]
     Indication: PAIN
     Route: 048
     Dates: start: 20110813, end: 20110823
  5. TRAMADOL HCL [Suspect]
     Route: 048
     Dates: start: 20110813, end: 20110813
  6. VALACICLOVIR [Suspect]
     Indication: STOMATITIS
     Route: 048
     Dates: start: 20110822, end: 20110824
  7. VALACICLOVIR [Suspect]
     Route: 048
     Dates: start: 20110818, end: 20110819
  8. AMOXICILLIN [Suspect]
     Indication: STOMATITIS
     Route: 048
     Dates: start: 20110819, end: 20110822
  9. NEBIVOLOL HCL [Concomitant]
     Route: 065
     Dates: start: 20110201
  10. ACETAMINOPHEN [Suspect]
     Route: 048
  11. MYFORTIC [Concomitant]
     Route: 065
     Dates: start: 20110201
  12. MORPHINE [Concomitant]
     Route: 065
     Dates: start: 20110818
  13. ESIDRIX [Suspect]
     Indication: HYPERTENSION
     Route: 048
     Dates: start: 20110201, end: 20110821
  14. PREDNISONE [Concomitant]
     Route: 065
     Dates: start: 20110201

REACTIONS (1)
  - AGRANULOCYTOSIS [None]
